FAERS Safety Report 8373418-2 (Version None)
Quarter: 2012Q2

REPORT INFORMATION
  Report Type: 
  Country: None (occurrence: None)
  Receive Date: 20120521
  Receipt Date: 20111103
  Transmission Date: 20120825
  Serious: No
  Sender: FDA-Public Use
  Company Number: US-TEVA-2011005659

PATIENT
  Age: 58 Year
  Sex: Male
  Weight: 85.3 kg

DRUGS (4)
  1. FLUDARABINE PHOSPHATE [Suspect]
  2. CYCLOPHOSPHAMIDE [Suspect]
  3. BENDAMUSTINE HYDROCHLORIDE [Suspect]
     Indication: CHRONIC LYMPHOCYTIC LEUKAEMIA
     Route: 042
     Dates: start: 20110726
  4. GA101 (OBINUTUZUMAB) [Suspect]
     Route: 042
     Dates: start: 20110725

REACTIONS (1)
  - NEUTROPENIA [None]
